FAERS Safety Report 9361097 (Version 1)
Quarter: 2013Q2

REPORT INFORMATION
  Report Type: Spontaneous
  Country: CA (occurrence: CA)
  Receive Date: 20130621
  Receipt Date: 20130621
  Transmission Date: 20140414
  Serious: Yes (Other)
  Sender: FDA-Public Use
  Company Number: CA-TEVA-414266USA

PATIENT
  Age: 61 Year
  Sex: Female
  Weight: 72.64 kg

DRUGS (1)
  1. DIVALPROEX SODIUM [Suspect]
     Route: 065

REACTIONS (2)
  - Abdominal pain upper [Unknown]
  - Hyperchlorhydria [Unknown]
